FAERS Safety Report 19315670 (Version 4)
Quarter: 2022Q3

REPORT INFORMATION
  Report Type: Spontaneous
  Country: US (occurrence: US)
  Receive Date: 20210528
  Receipt Date: 20220718
  Transmission Date: 20221027
  Serious: Yes (Hospitalization, Other)
  Sender: FDA-Public Use
  Company Number: US-SA-SAC00000000002720

PATIENT
  Age: 66 Year
  Sex: Female

DRUGS (41)
  1. FABRAZYME [Suspect]
     Active Substance: AGALSIDASE BETA
     Indication: Fabry^s disease
     Dosage: 105 MG, QOW
     Route: 042
     Dates: start: 20180221
  2. FABRAZYME [Suspect]
     Active Substance: AGALSIDASE BETA
     Indication: Lipidosis
     Dosage: 95 MG, QOW
     Route: 042
     Dates: start: 20200305
  3. DIPHENHYDRAMINE [Concomitant]
     Active Substance: DIPHENHYDRAMINE
  4. SODIUM CHLORIDE [Concomitant]
     Active Substance: SODIUM CHLORIDE
  5. STERILE WATER [Concomitant]
     Active Substance: WATER
  6. EPINEPHRINE [Concomitant]
     Active Substance: EPINEPHRINE
  7. CYMBALTA [Concomitant]
     Active Substance: DULOXETINE HYDROCHLORIDE
  8. TYLENOL ARTHRITIS PAIN [Concomitant]
     Active Substance: ACETAMINOPHEN
  9. PANTOPRAZOLE [Concomitant]
     Active Substance: PANTOPRAZOLE
  10. ALBUTEROL [Concomitant]
     Active Substance: ALBUTEROL
  11. OMEPRAZOLE [Concomitant]
     Active Substance: OMEPRAZOLE
  12. ALDACTONE [Concomitant]
     Active Substance: SPIRONOLACTONE
  13. NORVASC [Concomitant]
     Active Substance: AMLODIPINE BESYLATE
  14. SYNTHROID [Concomitant]
     Active Substance: LEVOTHYROXINE SODIUM
  15. LIPITOR [Concomitant]
     Active Substance: ATORVASTATIN CALCIUM
  16. TEGRETOL [Concomitant]
     Active Substance: CARBAMAZEPINE
  17. ZOFRAN [Concomitant]
     Active Substance: ONDANSETRON HYDROCHLORIDE
  18. ISOSORBIDE [Concomitant]
     Active Substance: ISOSORBIDE
  19. ASPIRIN [Concomitant]
     Active Substance: ASPIRIN
  20. MECLIZINE [Concomitant]
     Active Substance: MECLIZINE HYDROCHLORIDE
  21. FERROUS SULFATE [Concomitant]
     Active Substance: FERROUS SULFATE
  22. LASIX [Concomitant]
     Active Substance: FUROSEMIDE
  23. CALCIUM [Concomitant]
     Active Substance: CALCIUM
  24. NITROGLYCERIN [Concomitant]
     Active Substance: NITROGLYCERIN
     Route: 060
  25. LOSARTAN [Concomitant]
     Active Substance: LOSARTAN
  26. LOSARTAN [Concomitant]
     Active Substance: LOSARTAN
  27. TRAZODONE [Concomitant]
     Active Substance: TRAZODONE HYDROCHLORIDE
  28. PLAVIX [Concomitant]
     Active Substance: CLOPIDOGREL BISULFATE
  29. TOPROL XL [Concomitant]
     Active Substance: METOPROLOL SUCCINATE
  30. SODIUM CHLORIDE [Concomitant]
     Active Substance: SODIUM CHLORIDE
  31. MAGNESIUM [Concomitant]
     Active Substance: MAGNESIUM
  32. FISH OIL [Concomitant]
     Active Substance: FISH OIL
  33. COQ [Concomitant]
  34. POTASSIUM [Concomitant]
     Active Substance: POTASSIUM
  35. ELIQUIS [Concomitant]
     Active Substance: APIXABAN
     Route: 065
  36. ALBUTEROL SULFATE [Concomitant]
     Active Substance: ALBUTEROL SULFATE
     Route: 065
  37. ADRENALIN (EPINEPHRINE) [Concomitant]
     Active Substance: EPINEPHRINE
     Route: 065
  38. ISOSORBIDE [ISOSORBIDE MONONITRATE] [Concomitant]
     Route: 065
  39. MECLIZINE HYDROCHLORIDE [Concomitant]
     Active Substance: MECLIZINE HYDROCHLORIDE
     Route: 065
  40. POTASSIUM CHLORIDE [Concomitant]
     Active Substance: POTASSIUM CHLORIDE
     Route: 065
  41. LOSARTAN POTASSIUM [Concomitant]
     Active Substance: LOSARTAN POTASSIUM
     Route: 065

REACTIONS (6)
  - Cardiac failure congestive [Unknown]
  - Weight increased [Unknown]
  - Pulmonary oedema [Unknown]
  - Rotator cuff syndrome [Unknown]
  - Dysphonia [Unknown]
  - Sinusitis [Unknown]

NARRATIVE: CASE EVENT DATE: 20210101
